FAERS Safety Report 17861282 (Version 1)
Quarter: 2020Q2

REPORT INFORMATION
  Report Type: Spontaneous
  Country: US (occurrence: US)
  Receive Date: 20200604
  Receipt Date: 20200604
  Transmission Date: 20200714
  Serious: No
  Sender: FDA-Public Use
  Company Number: US-HARMONY BIOSCIENCES-2020HMY00240

PATIENT
  Sex: Male
  Weight: 115.65 kg

DRUGS (20)
  1. CYMBALTA [Suspect]
     Active Substance: DULOXETINE HYDROCHLORIDE
     Dosage: ^WEANING OFF^
     Dates: end: 2020
  2. ALBUTEROL. [Concomitant]
     Active Substance: ALBUTEROL
  3. IBUPROFEN. [Concomitant]
     Active Substance: IBUPROFEN
     Dosage: UNK, AS NEEDED
  4. MULTIVITAMIN [Concomitant]
     Active Substance: VITAMINS
  5. SINGULAIR [Concomitant]
     Active Substance: MONTELUKAST SODIUM
  6. SUNOSI [Suspect]
     Active Substance: SOLRIAMFETOL
     Dosage: 150 MG, 1X/DAY
     Dates: start: 2020
  7. SYMBICORT [Concomitant]
     Active Substance: BUDESONIDE\FORMOTEROL FUMARATE DIHYDRATE
  8. DULOXETINE. [Suspect]
     Active Substance: DULOXETINE
     Indication: SLEEP DISORDER
     Dosage: UNK
     Dates: start: 2020
  9. WAKIX [Suspect]
     Active Substance: PITOLISANT HYDROCHLORIDE
     Indication: NARCOLEPSY
     Dosage: 4.45 MG, 1X/DAY
     Route: 048
     Dates: start: 202002, end: 202002
  10. DYMISTA [Concomitant]
     Active Substance: AZELASTINE HYDROCHLORIDE\FLUTICASONE PROPIONATE
  11. LIPITOR [Concomitant]
     Active Substance: ATORVASTATIN CALCIUM
     Dosage: UNK
  12. LEXAPRO [Suspect]
     Active Substance: ESCITALOPRAM OXALATE
     Dosage: UNK
     Dates: start: 2020
  13. ZYRTEC [Concomitant]
     Active Substance: CETIRIZINE HYDROCHLORIDE
  14. OMEPRAZOLE. [Concomitant]
     Active Substance: OMEPRAZOLE
  15. WAKIX [Suspect]
     Active Substance: PITOLISANT HYDROCHLORIDE
     Dosage: 17.8 MG, 1X/DAY
     Route: 048
     Dates: start: 202003, end: 202003
  16. WAKIX [Suspect]
     Active Substance: PITOLISANT HYDROCHLORIDE
     Dosage: 8.9 MG, 1X/DAY
     Route: 048
     Dates: start: 202002, end: 202003
  17. WAKIX [Suspect]
     Active Substance: PITOLISANT HYDROCHLORIDE
     Dosage: 35.6 MG, 1X/DAY
     Route: 048
     Dates: start: 202003
  18. UNSPECIFIED ALLERGY SHOTS [Concomitant]
     Active Substance: UNSPECIFIED INGREDIENT
  19. LOTREL [Concomitant]
     Active Substance: AMLODIPINE BESYLATE\BENAZEPRIL HYDROCHLORIDE
  20. ALEVE [Concomitant]
     Active Substance: NAPROXEN SODIUM
     Dosage: UNK, AS NEEDED

REACTIONS (8)
  - Upper respiratory tract infection [Recovering/Resolving]
  - Sinusitis [Recovering/Resolving]
  - Presyncope [Recovering/Resolving]
  - Aphasia [Recovering/Resolving]
  - Dizziness [Recovering/Resolving]
  - Dyspnoea [Recovering/Resolving]
  - Disturbance in attention [Recovering/Resolving]
  - Weight increased [Unknown]

NARRATIVE: CASE EVENT DATE: 2020
